FAERS Safety Report 8116171-X (Version None)
Quarter: 2012Q1

REPORT INFORMATION
  Report Type: 
  Country: None (occurrence: None)
  Receive Date: 20120206
  Receipt Date: 20120202
  Transmission Date: 20120608
  Serious: Yes (Other)
  Sender: FDA-Public Use
  Company Number: US-PFIZER INC-2012013593

PATIENT
  Sex: Female
  Weight: 63.492 kg

DRUGS (4)
  1. NEURONTIN [Suspect]
     Indication: MUSCLE SPASMS
     Dosage: 400 MG, 2X/DAY
     Route: 048
     Dates: start: 20110201
  2. ARTHROTEC [Concomitant]
     Indication: ARTHRITIS
     Dosage: UNK
  3. ASCORBIC ACID [Concomitant]
     Dosage: UNK
  4. CENTRUM [Concomitant]
     Dosage: UNK

REACTIONS (4)
  - INSOMNIA [None]
  - LIMB DEFORMITY [None]
  - PAIN IN EXTREMITY [None]
  - MUSCLE SPASMS [None]
